FAERS Safety Report 18191887 (Version 3)
Quarter: 2020Q4

REPORT INFORMATION
  Report Type: Spontaneous
  Country: PK (occurrence: PK)
  Receive Date: 20200825
  Receipt Date: 20201101
  Transmission Date: 20210113
  Serious: Yes (Other)
  Sender: FDA-Public Use
  Company Number: PK-AMGEN-PAKSP2020001110

PATIENT
  Age: 48 Year
  Sex: Male
  Weight: 78 kg

DRUGS (5)
  1. ENBREL [Suspect]
     Active Substance: ETANERCEPT
     Indication: PSORIATIC ARTHROPATHY
     Dosage: 50 MG, EVERY 3 WEEKS
     Route: 065
     Dates: start: 2010
  2. ARCOX [Concomitant]
     Dosage: 60 MILLIGRAM, 1X/DAY (AFTER MEAL) FOR ONE MONTH, THEN AS NEEDED
  3. ENBREL [Suspect]
     Active Substance: ETANERCEPT
     Dosage: 50 MG, MONTHLY
     Route: 058
  4. COSENTYX [Concomitant]
     Active Substance: SECUKINUMAB
     Dosage: 150 MILLIGRAM
     Route: 058
     Dates: start: 201903
  5. ENBREL [Suspect]
     Active Substance: ETANERCEPT
     Dosage: 50 MG, AFTER EVERY 3 WEEKS
     Route: 058

REACTIONS (9)
  - Iridocyclitis [Unknown]
  - Hypertension [Unknown]
  - Dry mouth [Unknown]
  - Diabetes mellitus [Unknown]
  - Off label use [Unknown]
  - Neck pain [Unknown]
  - Back pain [Unknown]
  - Psoriasis [Unknown]
  - Musculoskeletal stiffness [Unknown]

NARRATIVE: CASE EVENT DATE: 2010
